FAERS Safety Report 16062590 (Version 1)
Quarter: 2019Q1

REPORT INFORMATION
  Report Type: Spontaneous
  Country: FR (occurrence: FR)
  Receive Date: 20190312
  Receipt Date: 20190312
  Transmission Date: 20190418
  Serious: Yes (Hospitalization)
  Sender: FDA-Public Use
  Company Number: FR-TEVA-2019-FR-1021124

PATIENT
  Age: 14 Year
  Sex: Female
  Weight: 37 kg

DRUGS (13)
  1. CELLCEPT [Concomitant]
     Active Substance: MYCOPHENOLATE MOFETIL\MYCOPHENOLATE MOFETIL HYDROCHLORIDE
     Indication: LUNG TRANSPLANT
     Dosage: UNK
     Dates: start: 20051020
  2. INSULIN [Concomitant]
     Active Substance: INSULIN NOS
     Dosage: UNK
  3. VFEND [Interacting]
     Active Substance: VORICONAZOLE
     Indication: ASPERGILLUS INFECTION
     Dosage: 200 MILLIGRAM DAILY;  2X/DAY
     Route: 048
     Dates: start: 20110912, end: 20110928
  4. VFEND [Interacting]
     Active Substance: VORICONAZOLE
     Dosage: UNK
     Route: 065
  5. TACROLIMUS. [Interacting]
     Active Substance: TACROLIMUS
     Indication: LUNG TRANSPLANT
     Dosage: UNK
     Dates: end: 20110914
  6. A 313 [Concomitant]
     Dosage: UNK
  7. ZITHROMAX [Interacting]
     Active Substance: AZITHROMYCIN DIHYDRATE
     Indication: OPPORTUNISTIC INFECTION PROPHYLAXIS
     Dosage: , ALTERNATE DAY
     Route: 048
  8. RIFADINE [Interacting]
     Active Substance: RIFAMPIN
     Indication: TUBERCULOSIS
     Dosage: 600 MILLIGRAM DAILY; 600 MG, 1X/DAY
     Route: 048
     Dates: start: 20110608, end: 20111009
  9. RIMIFON [Concomitant]
     Active Substance: ISONIAZID
     Indication: TUBERCULOSIS
     Dosage: UNK
     Dates: start: 20110608
  10. TACROLIMUS. [Suspect]
     Active Substance: TACROLIMUS
     Dosage: .5 MILLIGRAM DAILY;
     Route: 048
     Dates: start: 20110916
  11. ZITHROMAX [Interacting]
     Active Substance: AZITHROMYCIN DIHYDRATE
     Dosage: 250 MG, 3 TIMES PER WEEK
     Route: 065
     Dates: start: 20110912
  12. CANCIDAS [Interacting]
     Active Substance: CASPOFUNGIN ACETATE
     Indication: ASPERGILLUS INFECTION
     Dosage: 1 DOSAGE FORMS DAILY;
     Route: 042
     Dates: start: 20110913, end: 20110922
  13. CREON [Concomitant]
     Active Substance: PANCRELIPASE AMYLASE\PANCRELIPASE LIPASE\PANCRELIPASE PROTEASE
     Dosage: UNK

REACTIONS (3)
  - Drug level increased [Recovered/Resolved]
  - Drug interaction [Recovered/Resolved]
  - Acute kidney injury [Recovered/Resolved]

NARRATIVE: CASE EVENT DATE: 20110921
